FAERS Safety Report 7770693-X (Version None)
Quarter: 2011Q3

REPORT INFORMATION
  Report Type: 
  Country: None (occurrence: None)
  Receive Date: 20110922
  Receipt Date: 20101209
  Transmission Date: 20111222
  Serious: No
  Sender: FDA-Public Use
  Company Number: US-ASTRAZENECA-2010SE58578

PATIENT
  Sex: Male
  Weight: 93.9 kg

DRUGS (3)
  1. SEROQUEL [Suspect]
     Indication: SLEEP DISORDER
     Route: 048
  2. SEROQUEL [Suspect]
     Route: 048
     Dates: end: 20100101
  3. BLOOD PRESSURE MEDICATION [Concomitant]

REACTIONS (3)
  - DIZZINESS [None]
  - INTENTIONAL DRUG MISUSE [None]
  - IMPAIRED WORK ABILITY [None]
